FAERS Safety Report 5391443-0 (Version None)
Quarter: 2007Q3

REPORT INFORMATION
  Report Type: 
  Country: None (occurrence: None)
  Receive Date: 20070719
  Receipt Date: 20070709
  Transmission Date: 20080115
  Serious: Yes (Hospitalization, Other)
  Sender: FDA-Public Use
  Company Number: US-ROCHE-494041

PATIENT
  Age: 17 Year
  Sex: Male
  Weight: 125 kg

DRUGS (1)
  1. ACCUTANE [Suspect]
     Indication: DRUG USE FOR UNKNOWN INDICATION
     Route: 065
     Dates: start: 20001003, end: 20010212

REACTIONS (5)
  - CROHN'S DISEASE [None]
  - ENTEROVESICAL FISTULA [None]
  - INFLAMMATORY BOWEL DISEASE [None]
  - IRRITABLE BOWEL SYNDROME [None]
  - SMALL INTESTINAL OBSTRUCTION [None]
